FAERS Safety Report 5001099-4 (Version None)
Quarter: 2006Q2

REPORT INFORMATION
  Report Type: 
  Country: None (occurrence: None)
  Receive Date: 20060512
  Receipt Date: 20060505
  Transmission Date: 20061013
  Serious: Yes (Other)
  Sender: FDA-Public Use
  Company Number: US-BRISTOL-MYERS SQUIBB COMPANY-13369863

PATIENT
  Age: 96 Year
  Sex: Female
  Weight: 45 kg

DRUGS (3)
  1. TEQUIN [Suspect]
     Indication: URINARY TRACT INFECTION
     Route: 048
     Dates: start: 20041013
  2. HUMULIN N [Concomitant]
     Dosage: 19 UNITS IN AM, 2 UNITS IN PM
     Route: 058
  3. DITROPAN [Concomitant]
     Dates: start: 20041013, end: 20041001

REACTIONS (5)
  - BLOOD GLUCOSE DECREASED [None]
  - DIZZINESS [None]
  - FLUSHING [None]
  - IRRITABILITY [None]
  - TREMOR [None]
